FAERS Safety Report 16404985 (Version 1)
Quarter: 2019Q2

REPORT INFORMATION
  Report Type: Spontaneous
  Country: JP (occurrence: JP)
  Receive Date: 20190607
  Receipt Date: 20190607
  Transmission Date: 20190711
  Serious: Yes (Other)
  Sender: FDA-Public Use
  Company Number: JP-ACTELION-A-CH2019-190930

PATIENT
  Age: 30 Year
  Sex: Female

DRUGS (1)
  1. EPOPROSTENOL SODIUM. [Suspect]
     Active Substance: EPOPROSTENOL SODIUM
     Indication: PULMONARY ARTERIAL HYPERTENSION
     Route: 042

REACTIONS (7)
  - Blood immunoglobulin E increased [Recovered/Resolved]
  - Skin oedema [Recovered/Resolved]
  - Biopsy skin [Recovered/Resolved]
  - Skin disorder [Recovered/Resolved]
  - Urticaria [Recovered/Resolved]
  - Rhinophyma [Recovered/Resolved]
  - Lymphocytic infiltration [Recovered/Resolved]
